FAERS Safety Report 10189553 (Version 1)
Quarter: 2014Q2

REPORT INFORMATION
  Report Type: Spontaneous
  Country: US (occurrence: US)
  Receive Date: 20140522
  Receipt Date: 20140522
  Transmission Date: 20141212
  Serious: Yes (Hospitalization, Other)
  Sender: FDA-Public Use
  Company Number: US-CELGENEUS-163-21880-14052960

PATIENT
  Age: 78 Year
  Sex: Female
  Weight: 67.1 kg

DRUGS (3)
  1. REVLIMID [Suspect]
     Indication: PLASMA CELL MYELOMA
     Dosage: 25 MILLIGRAM
     Route: 048
     Dates: start: 201103
  2. REVLIMID [Suspect]
     Dosage: 25 MILLIGRAM
     Route: 048
     Dates: start: 201303
  3. REVLIMID [Suspect]
     Dosage: 25 MILLIGRAM
     Route: 048
     Dates: start: 201405

REACTIONS (6)
  - Back disorder [Unknown]
  - Pneumonia [Unknown]
  - Pneumonia [Unknown]
  - Thrombosis [Unknown]
  - Dyspepsia [Unknown]
  - Full blood count decreased [Unknown]
